FAERS Safety Report 15791421 (Version 16)
Quarter: 2020Q3

REPORT INFORMATION
  Report Type: Spontaneous
  Country: US (occurrence: US)
  Receive Date: 20190104
  Receipt Date: 20200817
  Transmission Date: 20201102
  Serious: Yes (Hospitalization, Other)
  Sender: FDA-Public Use
  Company Number: US-ACTELION-A-NJ2018-183958

PATIENT
  Sex: Female
  Weight: 64.85 kg

DRUGS (5)
  1. SILDENAFIL CITRATE. [Concomitant]
     Active Substance: SILDENAFIL CITRATE
  2. VELETRI [Suspect]
     Active Substance: EPOPROSTENOL
     Dosage: 15 NG/KG, PER MIN
     Route: 042
  3. VELETRI [Suspect]
     Active Substance: EPOPROSTENOL
     Indication: PULMONARY ARTERIAL HYPERTENSION
     Dosage: 15 NG/KG, PER MIN
     Route: 042
  4. VELETRI [Suspect]
     Active Substance: EPOPROSTENOL
     Dosage: 12 NG/KG, PER MIN
     Route: 042
  5. DILTIAZEM. [Concomitant]
     Active Substance: DILTIAZEM

REACTIONS (28)
  - Pleural effusion [Not Recovered/Not Resolved]
  - Paracentesis [Not Recovered/Not Resolved]
  - Haemoglobin decreased [Unknown]
  - Fluid overload [Unknown]
  - Fistula [Unknown]
  - Catheter placement [Unknown]
  - Melaena [Unknown]
  - Device alarm issue [Recovered/Resolved]
  - Device related thrombosis [Unknown]
  - Dyspnoea exertional [Not Recovered/Not Resolved]
  - Hepatic failure [Unknown]
  - Headache [Unknown]
  - Dialysis [Not Recovered/Not Resolved]
  - Aspiration pleural cavity [Not Recovered/Not Resolved]
  - Weight decreased [Unknown]
  - Medical device site swelling [Unknown]
  - Hospitalisation [Unknown]
  - Diarrhoea [Unknown]
  - Fluid retention [Recovered/Resolved]
  - Device occlusion [Recovered/Resolved]
  - Nausea [Unknown]
  - Coma [Unknown]
  - Ascites [Unknown]
  - Suture related complication [Unknown]
  - Cystitis [Unknown]
  - Encephalopathy [Unknown]
  - Abdominal distension [Unknown]
  - Oedema peripheral [Not Recovered/Not Resolved]

NARRATIVE: CASE EVENT DATE: 2019
